FAERS Safety Report 6897047-2 (Version None)
Quarter: 2010Q3

REPORT INFORMATION
  Report Type: 
  Country: None (occurrence: None)
  Receive Date: 20100802
  Receipt Date: 20070516
  Transmission Date: 20110219
  Serious: Yes (Hospitalization, Other)
  Sender: FDA-Public Use
  Company Number: US-PFIZER INC-2005139170

PATIENT
  Sex: Female
  Weight: 85.7 kg

DRUGS (9)
  1. LYRICA [Suspect]
     Indication: FIBROMYALGIA
     Route: 048
     Dates: start: 20050701
  2. PREVACID [Concomitant]
  3. DILACOR XR [Concomitant]
     Route: 065
  4. HYDROCHLOROTHIAZIDE [Concomitant]
     Route: 065
  5. LASIX [Concomitant]
  6. PRAVACHOL [Concomitant]
  7. TRIAVIL [Concomitant]
  8. VITAMIN B-12 [Concomitant]
  9. NIACIN [Concomitant]

REACTIONS (5)
  - ABDOMINAL PAIN UPPER [None]
  - DIPLOPIA [None]
  - FLUID RETENTION [None]
  - NAUSEA [None]
  - WEIGHT INCREASED [None]
